FAERS Safety Report 12365363 (Version 1)
Quarter: 2016Q2

REPORT INFORMATION
  Report Type: Spontaneous
  Country: FR (occurrence: FR)
  Receive Date: 20160512
  Receipt Date: 20160512
  Transmission Date: 20160815
  Serious: Yes (Hospitalization)
  Sender: FDA-Public Use
  Company Number: PHHY2016FR007749

PATIENT
  Age: 72 Year
  Sex: Male

DRUGS (10)
  1. LERCAN [Concomitant]
     Active Substance: LERCANIDIPINE
     Indication: PRODUCT USED FOR UNKNOWN INDICATION
     Dosage: UNK
     Route: 065
  2. PRETERAX [Concomitant]
     Active Substance: INDAPAMIDE\PERINDOPRIL
     Indication: PRODUCT USED FOR UNKNOWN INDICATION
     Dosage: UNK
     Route: 065
  3. EFFICORT LIPOPHILE [Concomitant]
     Indication: PRODUCT USED FOR UNKNOWN INDICATION
     Dosage: 0.127 %, UNK
     Route: 065
  4. PLUREXID [Concomitant]
     Indication: PRODUCT USED FOR UNKNOWN INDICATION
     Dosage: UNK
     Route: 065
  5. AURICULARUM [Suspect]
     Active Substance: DEXAMETHASONE SODIUM PHOSPHATE\NYSTATIN\OXYTETRACYCLINE\POLYMYXIN B SULFATE
     Indication: OTITIS EXTERNA
     Dosage: UNK
     Route: 001
     Dates: start: 20151210, end: 20151221
  6. AUGMENTIN [Suspect]
     Active Substance: AMOXICILLIN\CLAVULANATE POTASSIUM
     Indication: OTITIS EXTERNA
     Dosage: 1 G, TID
     Route: 048
     Dates: start: 20151210, end: 20151220
  7. XOLAIR [Concomitant]
     Active Substance: OMALIZUMAB
     Indication: PRODUCT USED FOR UNKNOWN INDICATION
     Dosage: UNK
     Route: 065
  8. LAMISIL//TERBINAFINE HYDROCHLORIDE [Concomitant]
     Indication: PRODUCT USED FOR UNKNOWN INDICATION
     Dosage: UNK
     Route: 061
  9. LAMISIL [Suspect]
     Active Substance: TERBINAFINE HYDROCHLORIDE
     Indication: INTERTRIGO
     Dosage: 250 MG, QID
     Route: 048
     Dates: start: 20151209, end: 20151213
  10. OFLOCET [Suspect]
     Active Substance: OFLOXACIN
     Indication: OTITIS EXTERNA
     Dosage: UNK
     Route: 001
     Dates: start: 20151210, end: 20151221

REACTIONS (1)
  - Rash maculo-papular [Recovered/Resolved]

NARRATIVE: CASE EVENT DATE: 20151218
